FAERS Safety Report 10068491 (Version 1)
Quarter: 2014Q2

REPORT INFORMATION
  Report Type: Spontaneous
  Country: PT (occurrence: PT)
  Receive Date: 20140409
  Receipt Date: 20140409
  Transmission Date: 20141212
  Serious: Yes (Other)
  Sender: FDA-Public Use
  Company Number: PT-009507513-1404PRT000339

PATIENT
  Age: 60 Year
  Sex: Female

DRUGS (3)
  1. ROCURONIUM BROMIDE [Suspect]
     Indication: MAINTENANCE OF ANAESTHESIA
  2. PROPOFOL [Concomitant]
  3. MIDAZOLAM [Concomitant]

REACTIONS (3)
  - Respiratory arrest [Unknown]
  - Skin test positive [Unknown]
  - Urticaria [Unknown]
